FAERS Safety Report 10766295 (Version 5)
Quarter: 2015Q2

REPORT INFORMATION
  Report Type: Spontaneous
  Country: JP (occurrence: JP)
  Receive Date: 20150205
  Receipt Date: 20150611
  Transmission Date: 20150821
  Serious: Yes (Hospitalization, Other)
  Sender: FDA-Public Use
  Company Number: PHJP2015JP001260

PATIENT
  Age: 77 Year
  Sex: Female
  Weight: 41 kg

DRUGS (5)
  1. SYMMETREL [Suspect]
     Active Substance: AMANTADINE HYDROCHLORIDE
     Indication: PARKINSONISM
     Dosage: 50 MG, QD
     Route: 048
     Dates: start: 20141203, end: 20150126
  2. AMLODIPINE [Suspect]
     Active Substance: AMLODIPINE BESYLATE
     Indication: HYPERTENSION
     Dosage: 5 MG, QD
     Route: 048
     Dates: start: 20140515, end: 20150124
  3. PROMAC                                  /JPN/ [Concomitant]
     Indication: GASTRITIS
     Dosage: 75 MG, BID
     Route: 048
     Dates: start: 20140516, end: 20150206
  4. MAGMITT [Concomitant]
     Active Substance: MAGNESIUM OXIDE
     Indication: CONSTIPATION
     Dosage: 330 MG, TID
     Route: 048
     Dates: start: 20141107, end: 20150130
  5. PURSENNID                               /SCH/ [Concomitant]
     Indication: CONSTIPATION
     Dosage: 12 MG, BID
     Route: 048
     Dates: start: 20141110, end: 20150130

REACTIONS (11)
  - Blood creatine phosphokinase increased [Unknown]
  - Normal pressure hydrocephalus [Unknown]
  - Vomiting [Recovered/Resolved]
  - Nausea [Unknown]
  - Rhabdomyolysis [Recovered/Resolved]
  - Muscle enzyme increased [Unknown]
  - Blood lactate dehydrogenase increased [Unknown]
  - Decreased appetite [Unknown]
  - Aspartate aminotransferase increased [Unknown]
  - Myalgia [Recovered/Resolved]
  - Chromaturia [Unknown]

NARRATIVE: CASE EVENT DATE: 201501
